FAERS Safety Report 8776145 (Version 2)
Quarter: 2012Q4

REPORT INFORMATION
  Report Type: 
  Country: MX (occurrence: MX)
  Receive Date: 20120910
  Receipt Date: 20120917
  Transmission Date: 20130627
  Serious: Yes (Death)
  Sender: FDA-Public Use
  Company Number: MX-UCBSA-065079

PATIENT
  Age: 19 Year
  Sex: Female
  Weight: 34 kg

DRUGS (4)
  1. KEPPRA [Suspect]
     Indication: EPILEPSY
     Route: 048
     Dates: start: 20120224, end: 20120815
  2. VIMPAT [Concomitant]
     Indication: EPILEPSY
     Dosage: VIA NASOGASTRIC TUBE
     Route: 048
     Dates: start: 20120224, end: 20120815
  3. OXCARBAZEPINE [Concomitant]
     Indication: EPILEPSY
     Dosage: VIA NASOGASTRIC TUBE
     Route: 048
     Dates: start: 20120224, end: 20120815
  4. TRIHEXYPHENIDYL [Concomitant]
     Indication: EPILEPSY
     Dosage: VIA NASOGASTRIC TUBE
     Route: 048
     Dates: start: 20120224, end: 20120815

REACTIONS (5)
  - Cardio-respiratory arrest [Fatal]
  - Aspiration bronchial [Fatal]
  - Pneumonia [Fatal]
  - Asphyxia [Fatal]
  - Haematemesis [Fatal]
